FAERS Safety Report 10372751 (Version 1)
Quarter: 2014Q3

REPORT INFORMATION
  Report Type: Other
  Country: GB (occurrence: GB)
  Receive Date: 20140808
  Receipt Date: 20140808
  Transmission Date: 20150326
  Serious: Yes (Other)
  Sender: FDA-Public Use
  Company Number: GB-MYLAN-2014S1017587

PATIENT

DRUGS (3)
  1. PRAVASTATIN SODIUM. [Suspect]
     Active Substance: PRAVASTATIN SODIUM
     Indication: HYPERCHOLESTEROLAEMIA
     Dosage: 40 MG, QD (NIGHT)
     Route: 048
     Dates: start: 2011
  2. PARACETAMOL [Concomitant]
     Active Substance: ACETAMINOPHEN
     Dosage: OCCASIONAL USE
  3. ASPIRIN. [Concomitant]
     Active Substance: ASPIRIN
     Dosage: 75 MG, QD (MORNING)

REACTIONS (8)
  - Constipation [Not Recovered/Not Resolved]
  - Fatigue [None]
  - Blister [Not Recovered/Not Resolved]
  - Skin exfoliation [Not Recovered/Not Resolved]
  - Pruritus [None]
  - Fatigue [Not Recovered/Not Resolved]
  - Skin exfoliation [None]
  - Pruritus [Not Recovered/Not Resolved]

NARRATIVE: CASE EVENT DATE: 2011
